FAERS Safety Report 7757456-6 (Version None)
Quarter: 2011Q3

REPORT INFORMATION
  Report Type: 
  Country: None (occurrence: None)
  Receive Date: 20110916
  Receipt Date: 20110914
  Transmission Date: 20111222
  Serious: Yes (Death)
  Sender: FDA-Public Use
  Company Number: DE-ABBOTT-11P-062-0854851-00

PATIENT
  Sex: Female

DRUGS (6)
  1. CZP [Concomitant]
     Indication: PRODUCT USED FOR UNKNOWN INDICATION
     Dates: start: 20100201
  2. HUMIRA [Suspect]
     Indication: RHEUMATOID ARTHRITIS
     Dates: start: 20080701, end: 20090801
  3. HUMIRA [Suspect]
     Dates: start: 20040101, end: 20050301
  4. LEFLUNOMID(LEF) [Concomitant]
     Indication: PRODUCT USED FOR UNKNOWN INDICATION
     Dates: start: 20010501, end: 20110303
  5. ETA [Concomitant]
     Indication: PRODUCT USED FOR UNKNOWN INDICATION
     Dates: start: 20050301, end: 20080601
  6. CIMZIA [Concomitant]
     Indication: PRODUCT USED FOR UNKNOWN INDICATION
     Dates: end: 20110303

REACTIONS (4)
  - BACTERIAL SEPSIS [None]
  - LIVER ABSCESS [None]
  - RENAL FAILURE ACUTE [None]
  - SPLENIC ABSCESS [None]
